FAERS Safety Report 11507165 (Version 1)
Quarter: 2015Q3

REPORT INFORMATION
  Report Type: Spontaneous
  Country: US (occurrence: None)
  Receive Date: 20150914
  Receipt Date: 20150914
  Transmission Date: 20151125
  Serious: Yes (Hospitalization, Disabling)
  Sender: FDA-Public Use
  Company Number: None

PATIENT
  Age: 67 Year
  Sex: Male
  Weight: 71.22 kg

DRUGS (11)
  1. CENTRUM SILVER [Concomitant]
     Active Substance: VITAMINS
  2. PAROXETINE [Concomitant]
     Active Substance: PAROXETINE\PAROXETINE HYDROCHLORIDE
  3. DICYCLOMINE [Concomitant]
     Active Substance: DICYCLOMINE HYDROCHLORIDE
  4. VITAMIN B12 [Concomitant]
     Active Substance: CYANOCOBALAMIN
  5. APAP [Concomitant]
     Active Substance: ACETAMINOPHEN
  6. LATUDA [Suspect]
     Active Substance: LURASIDONE HYDROCHLORIDE
     Indication: PSYCHOTIC DISORDER
     Dosage: TAKEN BY MOUTH
     Dates: start: 20150724, end: 20150907
  7. QVAR [Concomitant]
     Active Substance: BECLOMETHASONE DIPROPIONATE
  8. CLONAZEPAM. [Concomitant]
     Active Substance: CLONAZEPAM
  9. SIMVASTATIN. [Concomitant]
     Active Substance: SIMVASTATIN
  10. PROPRANOLOL [Concomitant]
     Active Substance: PROPRANOLOL\PROPRANOLOL HYDROCHLORIDE
  11. TEMAZEPAM. [Concomitant]
     Active Substance: TEMAZEPAM

REACTIONS (6)
  - Tardive dyskinesia [None]
  - Dizziness [None]
  - Memory impairment [None]
  - Confusional state [None]
  - Fall [None]
  - Tremor [None]

NARRATIVE: CASE EVENT DATE: 20150815
